FAERS Safety Report 10788271 (Version 1)
Quarter: 2015Q1

REPORT INFORMATION
  Report Type: Spontaneous
  Country: US (occurrence: None)
  Receive Date: 20150210
  Receipt Date: 20150210
  Transmission Date: 20150721
  Serious: Yes (Hospitalization, Other)
  Sender: FDA-Public Use
  Company Number: 014-2015-001

PATIENT
  Age: 13 Year
  Sex: Female

DRUGS (3)
  1. L-CITRULLINE [Concomitant]
     Active Substance: CITRULLINE
  2. RAVICTI [Suspect]
     Active Substance: GLYCEROL PHENYLBUTYRATE
     Indication: UREA CYCLE ENZYME DEFICIENCY
     Route: 048
     Dates: start: 20130502, end: 20131118
  3. L-CITRULLINE [Concomitant]
     Active Substance: CITRULLINE

REACTIONS (10)
  - Alanine aminotransferase increased [None]
  - Eye movement disorder [None]
  - Muscle twitching [None]
  - Lethargy [None]
  - Apnoea [None]
  - Aspartate aminotransferase increased [None]
  - Dyspnoea [None]
  - Abdominal pain [None]
  - Seizure [None]
  - Ammonia increased [None]

NARRATIVE: CASE EVENT DATE: 20150127
